FAERS Safety Report 7521121-0 (Version None)
Quarter: 2011Q2

REPORT INFORMATION
  Report Type: 
  Country: None (occurrence: None)
  Receive Date: 20110603
  Receipt Date: 20101206
  Transmission Date: 20111010
  Serious: Yes (Death, Congenital Anomaly, Other)
  Sender: FDA-Public Use
  Company Number: US-BAYER-2010-002095

PATIENT
  Weight: 0.72 kg

DRUGS (1)
  1. MIRENA [Suspect]

REACTIONS (2)
  - HOLOPROSENCEPHALY [None]
  - FOETAL GROWTH RESTRICTION [None]
